FAERS Safety Report 5035169-1 (Version None)
Quarter: 2006Q2

REPORT INFORMATION
  Report Type: 
  Country: None (occurrence: None)
  Receive Date: 20060529
  Receipt Date: 20060421
  Transmission Date: 20061013
  Serious: No
  Sender: FDA-Public Use
  Company Number: 06P-163-0329884-00

PATIENT
  Age: 52 Year
  Sex: Male
  Weight: 76 kg

DRUGS (20)
  1. KALETRA [Suspect]
     Indication: HIV INFECTION
     Dosage: SEE IMAGE
     Route: 048
     Dates: start: 20050408
  2. KALETRA [Suspect]
     Indication: HIV INFECTION
     Dosage: SEE IMAGE
     Route: 048
     Dates: start: 20060322
  3. SAQUINAVIR MESILATE [Suspect]
     Indication: HIV INFECTION
     Dosage: 1000 MG, 1 IN 1 D, ORAL
     Route: 048
     Dates: start: 20030715
  4. SAQUINAVIR MESILATE [Suspect]
     Indication: HIV INFECTION
     Dosage: 1000 MG, 1 IN 1 D, ORAL
     Route: 048
     Dates: start: 20060322
  5. ENFUVIRTIDE [Suspect]
     Indication: HIV INFECTION
     Dosage: 90 MG, 2 IN 1 D, PER ORAL
     Route: 048
     Dates: start: 20040615
  6. ENFUVIRTIDE [Suspect]
     Indication: HIV INFECTION
     Dosage: 90 MG, 2 IN 1 D, PER ORAL
     Route: 048
     Dates: start: 20060322
  7. FUZEON [Suspect]
     Indication: HIV INFECTION
     Dosage: SEE IMAGE
     Route: 048
     Dates: end: 20060307
  8. FUZEON [Suspect]
     Indication: HIV INFECTION
     Dosage: SEE IMAGE
     Route: 048
     Dates: start: 20050408
  9. FUZEON [Suspect]
     Indication: HIV INFECTION
     Dosage: SEE IMAGE
     Route: 048
     Dates: start: 20060322
  10. TRUVADA [Suspect]
     Indication: HIV INFECTION
     Dosage: 500 MG, 1 IN 1 D, ORAL
     Route: 048
     Dates: start: 20050424
  11. TRUVADA [Suspect]
     Indication: HIV INFECTION
     Dosage: 500 MG, 1 IN 1 D, ORAL
     Route: 048
     Dates: start: 20060322
  12. BACTRIM [Concomitant]
  13. ATORVASTATIN CALCIUM [Concomitant]
  14. LOMOTIL [Concomitant]
  15. TESTOSTERONE [Concomitant]
  16. IBUPROFEN [Concomitant]
  17. TRETINOIN [Concomitant]
  18. CORTISONE [Concomitant]
  19. DESONIDE [Concomitant]
  20. FLUOCINONIDE [Concomitant]

REACTIONS (1)
  - PANCREATITIS [None]
